FAERS Safety Report 20020535 (Version 2)
Quarter: 2021Q4

REPORT INFORMATION
  Report Type: Spontaneous
  Country: US (occurrence: None)
  Receive Date: 20211101
  Receipt Date: 20211130
  Transmission Date: 20220303
  Serious: No
  Sender: FDA-Public Use
  Company Number: 2021A763724

PATIENT
  Sex: Male

DRUGS (1)
  1. BYDUREON BCISE [Suspect]
     Active Substance: EXENATIDE
     Dosage: UNKNOWN
     Route: 058

REACTIONS (3)
  - Stomach mass [Unknown]
  - Wrong technique in device usage process [Unknown]
  - Device delivery system issue [Unknown]
